FAERS Safety Report 8095061-5 (Version None)
Quarter: 2012Q1

REPORT INFORMATION
  Report Type: 
  Country: None (occurrence: None)
  Receive Date: 20120125
  Receipt Date: 20120117
  Transmission Date: 20120608
  Serious: Yes (Hospitalization)
  Sender: FDA-Public Use
  Company Number: 7076064

PATIENT
  Age: 65 Year
  Sex: Female

DRUGS (17)
  1. LEXOMIL (BROMAZEPAM) (BROMAZEPAM) [Concomitant]
  2. CALCIUM CARBONATE [Suspect]
     Indication: PRODUCT USED FOR UNKNOWN INDICATION
     Dosage: 4 DF (2 DF, IN THE MORNING AND  IN THE EVENING)
  3. FUCIDINE CAP [Suspect]
     Indication: OSTEITIS
     Dosage: 4 DF (2 DF, IN THE MORNING AND IN THE EVENING)
     Dates: start: 20110501, end: 20110801
  4. CARDENSIEL (BISOPROLOL FUMARATE) (BISOPROLOL HEMIFUMARATE) [Concomitant]
  5. CORDARONE [Suspect]
     Indication: CARDIAC DISORDER
     Dates: start: 20110501
  6. STABLON (TIANEPTINE) (TIANEPTINE) [Concomitant]
  7. LEVOTHYROXINE SODIUM [Suspect]
     Indication: THYROIDECTOMY
     Dates: start: 20100101
  8. LEVOFLOXACIN [Suspect]
     Indication: PRODUCT USED FOR UNKNOWN INDICATION
     Dosage: 0.5 DF (0.5 DF, IN THE MORNING)
     Dates: end: 20110801
  9. INIPOMP (PANTOPRAZOLE) (40 MG) (PANTOPRAZOLE) [Concomitant]
  10. FUROSEMIDE [Concomitant]
  11. FOSRENOL [Suspect]
     Indication: PRODUCT USED FOR UNKNOWN INDICATION
     Dosage: 3 GM (1 GM, IN THE MORNING, MIDDAY, IN THE EVENING)
  12. CLOPIDOGREL [Concomitant]
  13. TAHOR (ATORVASTATIN CALCIUM) (10 MG, TABLET) (ATORVASTATIN) [Concomitant]
  14. KAYEXALATE [Suspect]
     Indication: PRODUCT USED FOR UNKNOWN INDICATION
     Dosage: (1 DF, 4 IN 1 WK) (PUNCTUALLY)
     Dates: start: 20110801
  15. IXPRIM (ULTRACET) (TRAMADOL, PARACETAMOL) [Concomitant]
  16. INSULIN [Concomitant]
  17. PROCORALAN (IVABRADINE HYDROCHLORIDE) (5 MG) (IVABRADINE) [Concomitant]

REACTIONS (5)
  - ASTHENIA [None]
  - DRUG INTERACTION [None]
  - DRUG INEFFECTIVE [None]
  - GENERAL PHYSICAL HEALTH DETERIORATION [None]
  - BLOOD THYROID STIMULATING HORMONE INCREASED [None]
